FAERS Safety Report 20626547 (Version 1)
Quarter: 2022Q1

REPORT INFORMATION
  Report Type: Report from Study
  Country: US (occurrence: US)
  Receive Date: 20220323
  Receipt Date: 20220323
  Transmission Date: 20220423
  Serious: Yes (Other)
  Sender: FDA-Public Use
  Company Number: US-SANOFI-01025741

PATIENT
  Age: 42 Year
  Sex: Female

DRUGS (2)
  1. DUPILUMAB [Suspect]
     Active Substance: DUPILUMAB
     Indication: Dermatitis atopic
     Dosage: 600 MG, 1X
     Route: 058
     Dates: start: 202107
  2. LAMA [AMLODIPINE BESILATE] [Concomitant]
     Dosage: UNK

REACTIONS (4)
  - Epilepsy [Not Recovered/Not Resolved]
  - Memory impairment [Not Recovered/Not Resolved]
  - Ill-defined disorder [Not Recovered/Not Resolved]
  - Dry eye [Not Recovered/Not Resolved]
